FAERS Safety Report 16258270 (Version 1)
Quarter: 2019Q2

REPORT INFORMATION
  Report Type: Spontaneous
  Country: US (occurrence: US)
  Receive Date: 20190430
  Receipt Date: 20190430
  Transmission Date: 20190711
  Serious: No
  Sender: FDA-Public Use
  Company Number: US-FLEXION THERAPEUTICS, INC.-2019FLS000038

PATIENT

DRUGS (4)
  1. ZILRETTA [Suspect]
     Active Substance: TRIAMCINOLONE ACETONIDE
     Indication: PRODUCT USED FOR UNKNOWN INDICATION
     Route: 014
  2. EUFLEXXA [Suspect]
     Active Substance: HYALURONATE SODIUM
     Indication: PRODUCT USED FOR UNKNOWN INDICATION
  3. EUFLEXXA [Suspect]
     Active Substance: HYALURONATE SODIUM
  4. EUFLEXXA [Suspect]
     Active Substance: HYALURONATE SODIUM

REACTIONS (1)
  - Joint effusion [Recovered/Resolved]
